FAERS Safety Report 9269778 (Version 1)
Quarter: 2013Q2

REPORT INFORMATION
  Report Type: Report from Study
  Country: NL (occurrence: NL)
  Receive Date: 20130503
  Receipt Date: 20130503
  Transmission Date: 20140414
  Serious: Yes (Death, Life-Threatening, Hospitalization)
  Sender: FDA-Public Use
  Company Number: NL-SANOFI-AVENTIS-2013SA027067

PATIENT
  Age: 47 Year
  Sex: Male
  Weight: 61 kg

DRUGS (8)
  1. DOCETAXEL [Suspect]
     Indication: NON-SMALL CELL LUNG CANCER STAGE IV
     Route: 051
     Dates: start: 20130124, end: 20130124
  2. DOCETAXEL [Suspect]
     Indication: NON-SMALL CELL LUNG CANCER STAGE IV
     Route: 051
     Dates: start: 20130214, end: 20130214
  3. DOCETAXEL [Suspect]
     Indication: NON-SMALL CELL LUNG CANCER STAGE IV
     Dates: start: 20130307, end: 20130312
  4. BLINDED THERAPY [Suspect]
     Indication: NON-SMALL CELL LUNG CANCER STAGE IV
     Route: 051
     Dates: start: 20130124, end: 20130124
  5. BLINDED THERAPY [Suspect]
     Indication: NON-SMALL CELL LUNG CANCER STAGE IV
     Route: 051
     Dates: start: 20130214, end: 20130214
  6. BLINDED THERAPY [Suspect]
     Indication: NON-SMALL CELL LUNG CANCER STAGE IV
     Dates: start: 20130307, end: 20130312
  7. PARACETAMOL [Concomitant]
     Indication: PAIN
     Dates: start: 201209
  8. LORMETAZEPAM [Concomitant]
     Indication: INSOMNIA
     Dates: start: 20130214

REACTIONS (5)
  - Oesophageal haemorrhage [Fatal]
  - General physical health deterioration [Recovered/Resolved]
  - Oesophageal fistula [Recovered/Resolved]
  - Nausea [Not Recovered/Not Resolved]
  - Vomiting [Not Recovered/Not Resolved]
